FAERS Safety Report 6450595-1 (Version None)
Quarter: 2009Q4

REPORT INFORMATION
  Report Type: 
  Country: None (occurrence: None)
  Receive Date: 20091123
  Receipt Date: 20091117
  Transmission Date: 20100525
  Serious: Yes (Hospitalization, Other)
  Sender: FDA-Public Use
  Company Number: DE-BAYER-200938555GPV

PATIENT
  Age: 38 Year
  Sex: Female

DRUGS (1)
  1. MIRENA [Suspect]
     Indication: CONTRACEPTION
     Route: 015
     Dates: start: 20090309, end: 20091023

REACTIONS (6)
  - ABDOMINAL PAIN [None]
  - APPENDICITIS [None]
  - BRADYCARDIA [None]
  - PERITONITIS [None]
  - SYNCOPE [None]
  - UTERINE PERFORATION [None]
